FAERS Safety Report 9046878 (Version 1)
Quarter: 2013Q1

REPORT INFORMATION
  Report Type: Spontaneous
  Country: US (occurrence: None)
  Receive Date: 20130129
  Receipt Date: 20130129
  Transmission Date: 20140127
  Serious: Yes (Disabling)
  Sender: FDA-Public Use
  Company Number: None

PATIENT
  Age: 34 Year
  Sex: Female
  Weight: 47.63 kg

DRUGS (1)
  1. LEVOFLOXACIN [Suspect]
     Indication: SINUSITIS
     Dosage: 1 TABLET     DAILY     PO
     Route: 048
     Dates: start: 20130107, end: 20130112

REACTIONS (4)
  - Tendonitis [None]
  - Muscular weakness [None]
  - Muscular weakness [None]
  - Pain [None]
